FAERS Safety Report 5411265-1 (Version None)
Quarter: 2007Q3

REPORT INFORMATION
  Report Type: 
  Country: None (occurrence: None)
  Receive Date: 20070810
  Receipt Date: 20070801
  Transmission Date: 20080115
  Serious: Yes (Hospitalization)
  Sender: FDA-Public Use
  Company Number: ES-ROCHE-495567

PATIENT
  Age: 67 Year
  Sex: Male

DRUGS (13)
  1. MYCOPHENOLATE MOFETIL [Suspect]
     Route: 048
     Dates: start: 20070309, end: 20070312
  2. MYCOPHENOLATE MOFETIL [Suspect]
     Route: 048
     Dates: start: 20070319
  3. FK506 [Suspect]
     Route: 048
     Dates: start: 20070309, end: 20070312
  4. FK506 [Suspect]
     Route: 048
     Dates: start: 20070319
  5. SEPTRIN [Concomitant]
  6. FUROSEMIDE [Concomitant]
  7. ALOPURINOL [Concomitant]
  8. AUGMENTIN '125' [Concomitant]
     Dosage: DRUG NAME REPORTED AS AUGMENTINE
  9. OMEPRAZOLE [Concomitant]
  10. INSULIN HUMAN [Concomitant]
     Dosage: DRUG REPORTED AS INSULIN NORDISK.
  11. NORADRENALINE [Concomitant]
  12. DOPAMINE HCL [Concomitant]
  13. AMIODARONE HCL [Concomitant]

REACTIONS (2)
  - OBSTRUCTIVE UROPATHY [None]
  - REPERFUSION INJURY [None]
